FAERS Safety Report 21630688 (Version 4)
Quarter: 2023Q2

REPORT INFORMATION
  Report Type: Spontaneous
  Country: US (occurrence: US)
  Receive Date: 20221123
  Receipt Date: 20230629
  Transmission Date: 20230722
  Serious: Yes (Other)
  Sender: FDA-Public Use
  Company Number: US-INCYTE CORPORATION-2022IN011058

PATIENT

DRUGS (4)
  1. JAKAFI [Suspect]
     Active Substance: RUXOLITINIB
     Indication: Polycythaemia vera
     Dosage: UNK
     Route: 048
  2. JAKAFI [Suspect]
     Active Substance: RUXOLITINIB
     Dosage: 10 MILLIGRAM, BID
     Route: 048
     Dates: start: 20221115
  3. JAKAFI [Suspect]
     Active Substance: RUXOLITINIB
     Dosage: 10 MILLIGRAM, BID
     Route: 048
     Dates: start: 20221115
  4. JAKAFI [Suspect]
     Active Substance: RUXOLITINIB
     Dosage: 10 MILLIGRAM, BID
     Route: 048
     Dates: start: 20221115

REACTIONS (24)
  - Precancerous skin lesion [Unknown]
  - Deafness transitory [Unknown]
  - Blindness transient [Unknown]
  - Abdominal discomfort [Unknown]
  - Blood pressure abnormal [Unknown]
  - Rash [Unknown]
  - Aphthous ulcer [Unknown]
  - Dermal cyst [Unknown]
  - Lymphocele [Unknown]
  - Breast cyst [Unknown]
  - Tinnitus [Unknown]
  - Emotional disorder [Unknown]
  - Blood iron decreased [Unknown]
  - Mean cell volume increased [Unknown]
  - Mean cell haemoglobin increased [Unknown]
  - Abdominal distension [Unknown]
  - Abdominal tenderness [Unknown]
  - Insomnia [Unknown]
  - Hyperphagia [Unknown]
  - Headache [Unknown]
  - Dizziness [Unknown]
  - Hypertension [Unknown]
  - Weight increased [Unknown]
  - Red blood cell count decreased [Unknown]

NARRATIVE: CASE EVENT DATE: 20230101
